FAERS Safety Report 12764081 (Version 1)
Quarter: 2016Q3

REPORT INFORMATION
  Report Type: Spontaneous
  Country: IT (occurrence: IT)
  Receive Date: 20160920
  Receipt Date: 20160920
  Transmission Date: 20161109
  Serious: Yes (Other)
  Sender: FDA-Public Use
  Company Number: IT-PFIZER INC-2016439207

PATIENT
  Age: 85 Year
  Sex: Female

DRUGS (8)
  1. FOLIC ACID. [Concomitant]
     Active Substance: FOLIC ACID
  2. LIORESAL [Suspect]
     Active Substance: BACLOFEN
     Dosage: 25 MG, 3X/DAY
     Route: 048
     Dates: start: 20160101
  3. NEURONTIN [Suspect]
     Active Substance: GABAPENTIN
     Dosage: 300 MG, 3X/DAY
     Route: 048
     Dates: start: 20160101, end: 20160717
  4. ASCRIPTIN [Concomitant]
     Active Substance: ASPIRIN
     Dosage: 300 MG, UNK
     Route: 048
  5. TRITTICO [Suspect]
     Active Substance: TRAZODONE HYDROCHLORIDE
     Dosage: 20 GTT, DAILY
     Route: 048
     Dates: start: 20160101, end: 20160717
  6. ZARELIS [Suspect]
     Active Substance: VENLAFAXINE HYDROCHLORIDE
     Dosage: 75 MG, DAILY
     Route: 048
     Dates: start: 20160101, end: 20160717
  7. LANSOX [Concomitant]
     Active Substance: LANSOPRAZOLE
     Route: 048
  8. ZYPREXA [Suspect]
     Active Substance: OLANZAPINE
     Dosage: 2.5 MG, DAILY
     Route: 048
     Dates: start: 20160101, end: 20160717

REACTIONS (1)
  - Sopor [Recovering/Resolving]

NARRATIVE: CASE EVENT DATE: 20160718
